FAERS Safety Report 5201140-X (Version None)
Quarter: 2007Q1

REPORT INFORMATION
  Report Type: 
  Country: None (occurrence: None)
  Receive Date: 20070104
  Receipt Date: 20061222
  Transmission Date: 20070707
  Serious: Yes (Other)
  Sender: FDA-Public Use
  Company Number: FACT0600457

PATIENT
  Age: 46 Year
  Sex: Male
  Weight: 72.6 kg

DRUGS (1)
  1. FACTIVE [Suspect]
     Indication: RESPIRATORY TRACT INFECTION BACTERIAL
     Dosage: 320 MG QD ORAL
     Route: 048
     Dates: start: 20061208, end: 20061214

REACTIONS (7)
  - PHARYNGEAL OEDEMA [None]
  - RASH ERYTHEMATOUS [None]
  - RASH GENERALISED [None]
  - RASH MACULO-PAPULAR [None]
  - RASH PRURITIC [None]
  - SOMNOLENCE [None]
  - THROAT TIGHTNESS [None]
